FAERS Safety Report 10931135 (Version 3)
Quarter: 2016Q4

REPORT INFORMATION
  Report Type: Report from Study
  Country: None (occurrence: BR)
  Receive Date: 20150319
  Receipt Date: 20161006
  Transmission Date: 20170206
  Serious: Yes (Other)
  Sender: FDA-Public Use
  Company Number: BR-ABBVIE-15K-020-1338174-00

PATIENT
  Age: 41 Year
  Sex: Female
  Weight: 71 kg

DRUGS (6)
  1. METHOTREXATE. [Concomitant]
     Active Substance: METHOTREXATE
     Indication: RHEUMATOID ARTHRITIS
  2. SERTRALINE [Concomitant]
     Active Substance: SERTRALINE HYDROCHLORIDE
     Indication: ANTIDEPRESSANT THERAPY
     Route: 048
     Dates: start: 2012
  3. HUMIRA [Suspect]
     Active Substance: ADALIMUMAB
     Route: 058
     Dates: start: 20141024
  4. HUMIRA [Suspect]
     Active Substance: ADALIMUMAB
     Indication: RHEUMATOID ARTHRITIS
     Route: 058
     Dates: start: 20070705, end: 20140924
  5. HUMIRA [Suspect]
     Active Substance: ADALIMUMAB
     Route: 058
  6. METHOTREXATE. [Concomitant]
     Active Substance: METHOTREXATE
     Indication: ARTHRITIS
     Dosage: ON MONDAYS
     Route: 048
     Dates: start: 2003

REACTIONS (15)
  - Anxiety [Unknown]
  - Tendonitis [Recovered/Resolved]
  - Arthropathy [Unknown]
  - Depression [Recovered/Resolved]
  - Tendon disorder [Unknown]
  - Oedema peripheral [Unknown]
  - Osteoarthritis [Recovering/Resolving]
  - Osteonecrosis [Recovering/Resolving]
  - Joint effusion [Not Recovered/Not Resolved]
  - Joint swelling [Unknown]
  - Impaired healing [Recovering/Resolving]
  - Drug ineffective [Unknown]
  - Pain [Recovering/Resolving]
  - Bursitis [Unknown]
  - Bone erosion [Recovering/Resolving]

NARRATIVE: CASE EVENT DATE: 201101
